FAERS Safety Report 7323658-6 (Version None)
Quarter: 2011Q1

REPORT INFORMATION
  Report Type: 
  Country: None (occurrence: None)
  Receive Date: 20110301
  Receipt Date: 20110216
  Transmission Date: 20110831
  Serious: Yes (Death)
  Sender: FDA-Public Use
  Company Number: US-ELI_LILLY_AND_COMPANY-US201102004580

PATIENT
  Age: 39 Year
  Sex: Female

DRUGS (3)
  1. HYDROCODONE [Concomitant]
  2. CYMBALTA [Suspect]
     Indication: PAIN
     Dosage: UNK, UNKNOWN
  3. LYRICA [Concomitant]

REACTIONS (2)
  - DEATH [None]
  - OFF LABEL USE [None]
